FAERS Safety Report 7428523-1 (Version None)
Quarter: 2011Q2

REPORT INFORMATION
  Report Type: 
  Country: None (occurrence: None)
  Receive Date: 20110415
  Receipt Date: 20110415
  Transmission Date: 20111010
  Serious: Yes (Hospitalization)
  Sender: FDA-Public Use
  Company Number: None

PATIENT
  Age: 35 Year
  Sex: Male
  Weight: 61.7 kg

DRUGS (1)
  1. GEMCITABINE HYDROCHLORIDE [Suspect]
     Dosage: 3600 MG
     Dates: end: 20110322

REACTIONS (1)
  - VASCULITIS [None]
